FAERS Safety Report 5474566-7 (Version None)
Quarter: 2007Q3

REPORT INFORMATION
  Report Type: 
  Country: None (occurrence: None)
  Receive Date: 20070928
  Receipt Date: 20070921
  Transmission Date: 20080115
  Serious: Yes (Other)
  Sender: FDA-Public Use
  Company Number: 2007SP019315

PATIENT
  Age: 58 Year
  Sex: Male
  Weight: 122.4712 kg

DRUGS (2)
  1. PEG-INTRON [Suspect]
     Indication: HEPATITIS C
     Dosage: SC
     Route: 058
     Dates: start: 20070406
  2. RIBAVIRIN [Suspect]
     Indication: HEPATITIS C
     Dosage: PO
     Route: 048
     Dates: start: 20070406

REACTIONS (11)
  - ARTHRALGIA [None]
  - ASTHENIA [None]
  - DISORIENTATION [None]
  - EXCORIATION [None]
  - FALL [None]
  - HEADACHE [None]
  - HYPERHIDROSIS [None]
  - NAUSEA [None]
  - NERVE COMPRESSION [None]
  - PYREXIA [None]
  - VERTIGO [None]
